FAERS Safety Report 8965319 (Version 3)
Quarter: 2013Q1

REPORT INFORMATION
  Report Type: Spontaneous
  Country: US (occurrence: US)
  Receive Date: 20121213
  Receipt Date: 20130118
  Transmission Date: 20140127
  Serious: No
  Sender: FDA-Public Use
  Company Number: US-PFIZER INC-2012311997

PATIENT
  Age: 44 Year
  Sex: Female
  Weight: 73 kg

DRUGS (20)
  1. NEURONTIN [Suspect]
     Indication: NEURALGIA
     Dosage: 600 MG, 3X/DAY
     Route: 048
     Dates: start: 20101020
  2. NEURONTIN [Suspect]
     Indication: PAIN
  3. DEXILANT [Concomitant]
     Dosage: 30MG, 1X/DAY
     Dates: start: 20120612
  4. ALBUTEROL MDI [Concomitant]
     Dosage: 25, UNK, 4X DAILY AS NEEDED
     Dates: start: 20101020
  5. HCTZ [Concomitant]
     Dosage: 25 MG, 1X/DAY
     Route: 048
     Dates: start: 20101020
  6. DIOVAN (VALSARTAN) [Concomitant]
     Dosage: 160 MG, 1X/DAY
     Route: 048
     Dates: start: 20101020
  7. ADVAIR [Concomitant]
     Dosage: 500/50,UNK,1 PUFF TWICE DAILY
     Dates: start: 20101020
  8. SINGULAIR [Concomitant]
     Dosage: 10 MG, 1X/DAY
     Route: 048
     Dates: start: 20101020
  9. CELEXA [Concomitant]
     Dosage: 40 MG, 1X/DAY
     Route: 048
     Dates: start: 20101020, end: 20110712
  10. RANITIDINE [Concomitant]
     Dosage: 300 MG, 2X/DAY
     Route: 048
     Dates: start: 20101020, end: 20110712
  11. OMEPRAZOLE [Concomitant]
     Dosage: 20 MG, 1X/DAY
     Route: 048
     Dates: start: 20101020
  12. NAPROXEN [Concomitant]
     Dosage: 500 MG, 2X/DAY
     Dates: start: 20110412
  13. TRAMADOL [Concomitant]
     Dosage: 50 MG, 1-2 X DAILY AS NEEDED
     Dates: end: 20120110
  14. PROZAC [Concomitant]
     Dosage: 20 MG, 1X/DAY
     Dates: start: 20110412, end: 20120110
  15. PROZAC [Concomitant]
     Dosage: 40 MG, 1X/DAY
  16. VITACAL [Concomitant]
     Dosage: 600 MG, 2X/DAY
     Dates: start: 20110425, end: 20110912
  17. VITACAL [Concomitant]
     Dosage: 1/2 TABLET DAILY
  18. FLEXERIL [Concomitant]
     Dosage: 10 MG, 1X/DAY
     Dates: start: 20110809
  19. RM TRAMADOL [Concomitant]
     Dosage: 50 MG, 3X/DAY
     Dates: start: 20120110
  20. ACE INHIBITOR NOS [Concomitant]

REACTIONS (1)
  - Pain [Recovered/Resolved]
